FAERS Safety Report 21679205 (Version 1)
Quarter: 2022Q4

REPORT INFORMATION
  Report Type: Report from Study
  Country: CA (occurrence: CA)
  Receive Date: 20221204
  Receipt Date: 20221204
  Transmission Date: 20230113
  Serious: Yes (Other)
  Sender: FDA-Public Use
  Company Number: CA-ABBVIE-4222379

PATIENT
  Sex: Female

DRUGS (1)
  1. HUMIRA [Suspect]
     Active Substance: ADALIMUMAB
     Indication: Crohn^s disease
     Dosage: STRENGTH- 40 MG
     Route: 058
     Dates: start: 20220715

REACTIONS (7)
  - Colostomy [Unknown]
  - Limb mass [Unknown]
  - Uveitis [Not Recovered/Not Resolved]
  - Pain in extremity [Unknown]
  - Pustular psoriasis [Not Recovered/Not Resolved]
  - Fistula [Unknown]
  - Limb discomfort [Unknown]
